FAERS Safety Report 14325268 (Version 1)
Quarter: 2017Q4

REPORT INFORMATION
  Report Type: Spontaneous
  Country: US (occurrence: US)
  Receive Date: 20171224
  Receipt Date: 20171224
  Transmission Date: 20180321
  Serious: No
  Sender: FDA-Public Use
  Company Number: None

PATIENT
  Age: 61 Year
  Sex: Female
  Weight: 60.75 kg

DRUGS (1)
  1. HYDROCODONE 5MG ACETOMINOPHIN 325 MG [Suspect]
     Active Substance: ACETAMINOPHEN\HYDROCODONE BITARTRATE
     Indication: NERVE COMPRESSION
     Dosage: ?          QUANTITY:40 TABLET(S);?
     Route: 048
     Dates: end: 20171222

REACTIONS (3)
  - Drug ineffective [None]
  - Product substitution issue [None]
  - Product formulation issue [None]
